FAERS Safety Report 10215175 (Version 1)
Quarter: 2014Q2

REPORT INFORMATION
  Report Type: Spontaneous
  Country: GB (occurrence: GB)
  Receive Date: 20140603
  Receipt Date: 20140603
  Transmission Date: 20141212
  Serious: Yes (Other)
  Sender: FDA-Public Use
  Company Number: PHHY2014GB065695

PATIENT
  Age: 28 Year
  Sex: Female
  Weight: 84 kg

DRUGS (8)
  1. THIOPENTAL [Suspect]
     Indication: MAINTENANCE OF ANAESTHESIA
     Dosage: 500 MG, UNK
  2. ALFENTANIL [Suspect]
     Indication: MAINTENANCE OF ANAESTHESIA
     Dosage: 1 MG, UNK
  3. SUXAMETHONIUM CHLORIDE [Suspect]
     Indication: MAINTENANCE OF ANAESTHESIA
     Dosage: 100 MG, UNK
  4. ROCURONIUM BROMIDE [Suspect]
     Indication: MAINTENANCE OF ANAESTHESIA
     Dosage: 40 MG, UNK
  5. MORPHINE [Suspect]
     Indication: MAINTENANCE OF ANAESTHESIA
     Dosage: 10 MG, UNK
  6. PARACETAMOL [Suspect]
     Indication: BACK PAIN
     Dosage: 1 G, UNK
  7. PARACETAMOL [Suspect]
     Indication: STRESS
     Dosage: 25 G, UNK
  8. CO-AMOXICLAV [Suspect]
     Dosage: 1.2 G, UNK

REACTIONS (10)
  - Tachycardia [Unknown]
  - Hepatic function abnormal [Recovering/Resolving]
  - Alanine aminotransferase increased [Recovering/Resolving]
  - Blood bilirubin increased [Recovering/Resolving]
  - Blood lactate dehydrogenase increased [Recovering/Resolving]
  - Platelet count decreased [Recovering/Resolving]
  - Abdominal tenderness [Recovering/Resolving]
  - Somnolence [Unknown]
  - Nausea [Unknown]
  - Maternal exposure during pregnancy [Unknown]
